FAERS Safety Report 6406549-4 (Version None)
Quarter: 2009Q4

REPORT INFORMATION
  Report Type: 
  Country: None (occurrence: None)
  Receive Date: 20091014
  Receipt Date: 20090624
  Transmission Date: 20100525
  Serious: Yes (Hospitalization, Other)
  Sender: FDA-Public Use
  Company Number: 2009SP013780

PATIENT
  Age: 73 Year
  Sex: Female
  Weight: 53 kg

DRUGS (13)
  1. PEGINTERFERON ALFA-2B (S-P) (PEFINTERFERON ALFA-2B) [Suspect]
     Indication: HEPATITIS C
     Dosage: 0.25 ML;QW;SC
     Route: 058
     Dates: start: 20071121, end: 20090824
  2. BETAMETHASONE VALERATE [Suspect]
     Indication: PRURITUS
     Dosage: ;PRN;TOP
     Route: 061
     Dates: start: 20080312
  3. NORVASC [Suspect]
     Indication: HYPERTENSION
     Dosage: 5 MG;QD;PO
     Route: 048
     Dates: end: 20090817
  4. DETRUSITOL (TOLTERODINE) [Suspect]
     Indication: CYSTITIS INTERSTITIAL
     Dosage: 4 MG;QD;PO
     Route: 048
  5. URSO (RUSODEOXYCHOLIC ACID) [Suspect]
     Indication: HEPATITIS C
     Dosage: 2 DF;TID;PO
     Route: 048
  6. ASCORBIC ACID [Suspect]
     Indication: VITAMIN SUPPLEMENTATION
     Dosage: 1 DF;BID;PO
     Route: 048
  7. PL GRAN. (PL GRAN.) [Suspect]
     Indication: PROPHYLAXIS
     Dosage: 1 DF;PRN;PO
     Route: 048
     Dates: start: 20080326
  8. BIOFERMIN (BIOFERMIN) [Suspect]
     Indication: FLATULENCE
     Dosage: 3 DF;TID;PO
     Route: 048
     Dates: start: 20080423
  9. LOXONIN (LOXOPROFEN) [Suspect]
     Indication: OSTEOARTHRITIS
     Dosage: 60 MG;PRN;PO
     Route: 048
     Dates: start: 20080327
  10. CIPROXAN [Concomitant]
  11. VOLTAREN [Concomitant]
  12. HIRUDOID [Concomitant]
  13. ORGADRONE [Concomitant]

REACTIONS (3)
  - HEPATIC NEOPLASM MALIGNANT [None]
  - NODULE [None]
  - OESOPHAGEAL VARICEAL LIGATION [None]
